FAERS Safety Report 4537106-2 (Version None)
Quarter: 2004Q4

REPORT INFORMATION
  Report Type: 
  Country: None (occurrence: None)
  Receive Date: 20041221
  Receipt Date: 20041214
  Transmission Date: 20050328
  Serious: Yes (Hospitalization, Other)
  Sender: FDA-Public Use
  Company Number: HQWYE973815DEC04

PATIENT
  Age: 34 Year
  Sex: Female
  Weight: 110.32 kg

DRUGS (10)
  1. RAPAMUNE [Suspect]
     Indication: PROPHYLAXIS AGAINST TRANSPLANT REJECTION
     Dosage: 5 MG 1X PER 1 DAY
     Dates: start: 20040108, end: 20040101
  2. TACROLIMUS (TACROLIMUS) [Concomitant]
  3. PREDNISONE [Concomitant]
  4. HUMULIN REGULAR (INSULIN HUMAN) [Concomitant]
  5. LIPITOR [Concomitant]
  6. NORVASC [Concomitant]
  7. COZAAR [Concomitant]
  8. GLIPIZIDE [Concomitant]
  9. SEPTRA [Concomitant]
  10. FUROSEMIDE [Concomitant]

REACTIONS (2)
  - CARDIAC TAMPONADE [None]
  - PERICARDIAL EFFUSION [None]
